FAERS Safety Report 17258986 (Version 2)
Quarter: 2020Q1

REPORT INFORMATION
  Report Type: Spontaneous
  Country: CN (occurrence: CN)
  Receive Date: 20200110
  Receipt Date: 20200129
  Transmission Date: 20200409
  Serious: Yes (Hospitalization, Other)
  Sender: FDA-Public Use
  Company Number: CN-SA-2020SA003892

PATIENT
  Age: 63 Year
  Sex: Male

DRUGS (1)
  1. CLOPIDOGREL BISULFATE. [Suspect]
     Active Substance: CLOPIDOGREL BISULFATE
     Indication: LACUNAR INFARCTION
     Dosage: UNK

REACTIONS (4)
  - Hypoglycaemia [Recovered/Resolved]
  - Insulin autoimmune syndrome [Recovered/Resolved]
  - Insulin C-peptide increased [Recovered/Resolved]
  - Blood insulin increased [Recovered/Resolved]
